FAERS Safety Report 7400322-6 (Version None)
Quarter: 2011Q2

REPORT INFORMATION
  Report Type: 
  Country: None (occurrence: None)
  Receive Date: 20110407
  Receipt Date: 20110328
  Transmission Date: 20111010
  Serious: Yes (Hospitalization)
  Sender: FDA-Public Use
  Company Number: AT-JNJFOC-20110311489

PATIENT
  Age: 72 Year
  Sex: Female

DRUGS (10)
  1. PANTOLOC [Concomitant]
  2. LASIX [Concomitant]
  3. INDERAL [Concomitant]
  4. DIGIMERCK [Concomitant]
  5. DOXAPRESS [Concomitant]
  6. STELARA [Suspect]
     Indication: PSORIASIS
     Route: 058
  7. MARCOUMAR [Concomitant]
  8. UROSIN [Concomitant]
  9. THIAMAZOL [Concomitant]
  10. MAGNESIUM VERLA [Concomitant]

REACTIONS (2)
  - ARRHYTHMIA [None]
  - PSORIASIS [None]
